FAERS Safety Report 9265609 (Version 1)
Quarter: 2013Q2

REPORT INFORMATION
  Report Type: Spontaneous
  Country: FR (occurrence: FR)
  Receive Date: 20130501
  Receipt Date: 20130501
  Transmission Date: 20140414
  Serious: Yes (Hospitalization, Other)
  Sender: FDA-Public Use
  Company Number: FR-TEVA-400320ISR

PATIENT
  Age: 48 Year
  Sex: Female

DRUGS (7)
  1. COPAXONE [Suspect]
     Indication: MULTIPLE SCLEROSIS
     Dates: start: 200308
  2. TRANXENE 20 MG [Concomitant]
  3. IXEL 50 MG [Concomitant]
  4. STILNOX 10 MG [Concomitant]
  5. MOVICOL [Concomitant]
     Route: 048
  6. LASILIX [Concomitant]
  7. MOTILIUM [Concomitant]

REACTIONS (14)
  - Monoplegia [Not Recovered/Not Resolved]
  - Lipodystrophy acquired [Not Recovered/Not Resolved]
  - Rectocele [Unknown]
  - Cystocele [Unknown]
  - Renal colic [Unknown]
  - Nephrolithiasis [Unknown]
  - Functional gastrointestinal disorder [Not Recovered/Not Resolved]
  - Headache [Not Recovered/Not Resolved]
  - Paraesthesia [Not Recovered/Not Resolved]
  - Visual impairment [Not Recovered/Not Resolved]
  - Dyspnoea [Not Recovered/Not Resolved]
  - Thirst [Not Recovered/Not Resolved]
  - Hot flush [Not Recovered/Not Resolved]
  - Underdose [Unknown]
